FAERS Safety Report 20884683 (Version 1)
Quarter: 2022Q2

REPORT INFORMATION
  Report Type: Spontaneous
  Country: ES (occurrence: ES)
  Receive Date: 20220527
  Receipt Date: 20220527
  Transmission Date: 20220721
  Serious: Yes (Hospitalization, Other)
  Sender: FDA-Public Use
  Company Number: None

PATIENT
  Age: 87 Year
  Sex: Female

DRUGS (5)
  1. AMLODIPINE BESYLATE [Interacting]
     Active Substance: AMLODIPINE BESYLATE
     Dosage: 10 MG, DAILY (24 HOURS)
     Route: 048
     Dates: start: 20220223, end: 20220223
  2. DOXAZOSIN [Interacting]
     Active Substance: DOXAZOSIN MESYLATE
     Indication: Hypertension
     Dosage: 2 MG, DAILY (24 HOURS)
     Route: 048
     Dates: start: 20220223, end: 20220223
  3. OMEPRAZOLE [Interacting]
     Active Substance: OMEPRAZOLE
     Dosage: 20 MG, 1X/DAY (24 HOURS)
     Route: 048
     Dates: start: 20220223, end: 20220223
  4. PAROXETINE [Interacting]
     Active Substance: PAROXETINE
     Route: 048
     Dates: start: 20220223, end: 20220223
  5. VILDAGLIPTIN [Interacting]
     Active Substance: VILDAGLIPTIN
     Route: 048
     Dates: start: 20220223, end: 20220223

REACTIONS (4)
  - Wrong patient [Recovered/Resolved]
  - Drug interaction [Recovered/Resolved]
  - Cardiac failure congestive [Recovered/Resolved]
  - Respiratory failure [Recovered/Resolved]

NARRATIVE: CASE EVENT DATE: 20220223
